FAERS Safety Report 19212938 (Version 3)
Quarter: 2021Q2

REPORT INFORMATION
  Report Type: Report from Study
  Country: PT (occurrence: PT)
  Receive Date: 20210504
  Receipt Date: 20210514
  Transmission Date: 20210717
  Serious: Yes (Death, Life-Threatening, Hospitalization)
  Sender: FDA-Public Use
  Company Number: PT-GILEAD-2021-0527290

PATIENT
  Sex: Female

DRUGS (16)
  1. VALGANCICLOVIR. [Concomitant]
     Active Substance: VALGANCICLOVIR
     Indication: PROPHYLAXIS
     Route: 048
     Dates: start: 20190207
  2. METFORMIN;VILDAGLIPTIN [Concomitant]
     Active Substance: METFORMIN\VILDAGLIPTIN
     Indication: DIABETES MELLITUS
     Route: 048
     Dates: start: 20190207
  3. ACETYLCYSTEINE. [Concomitant]
     Active Substance: ACETYLCYSTEINE
     Indication: COUGH
     Route: 048
     Dates: start: 20190320, end: 2019
  4. IDELALISIB [Suspect]
     Active Substance: IDELALISIB
     Indication: FOLLICULAR LYMPHOMA
     Dosage: 150 MG, BID
     Route: 048
     Dates: start: 20190207, end: 20200519
  5. TRIMETHOPRIM SULFAMETHOXAZOLE [Concomitant]
     Active Substance: SULFAMETHOXAZOLE\TRIMETHOPRIM
     Indication: PROPHYLAXIS
     Route: 048
     Dates: start: 20190207
  6. FLUCONAZOLE. [Concomitant]
     Active Substance: FLUCONAZOLE
     Indication: PROPHYLAXIS
     Route: 048
     Dates: start: 20190207
  7. IDELALISIB [Suspect]
     Active Substance: IDELALISIB
     Route: 048
     Dates: start: 20190207, end: 20190519
  8. SIMETHICONE (DIMETHICONE) [Concomitant]
     Active Substance: DIMETHICONE
     Indication: ABDOMINAL PAIN
     Route: 048
     Dates: start: 20190207, end: 20190409
  9. OFLOXACIN. [Concomitant]
     Active Substance: OFLOXACIN
     Indication: CONJUNCTIVITIS
     Route: 047
     Dates: start: 20190409, end: 20190412
  10. CEFUROXIME. [Concomitant]
     Active Substance: CEFUROXIME
     Indication: FEBRILE NEUTROPENIA
     Route: 048
     Dates: start: 20190507, end: 201905
  11. FUROSEMIDE. [Concomitant]
     Active Substance: FUROSEMIDE
     Route: 048
     Dates: start: 20190417
  12. ALLOPURINOL. [Concomitant]
     Active Substance: ALLOPURINOL
     Indication: HYPERURICAEMIA
     Route: 048
     Dates: start: 20190207
  13. DESLORATADINE. [Concomitant]
     Active Substance: DESLORATADINE
     Indication: COUGH
     Route: 048
     Dates: start: 20190417
  14. AMOXICILLIN + CLAVULANIC ACID [Concomitant]
     Active Substance: AMOXICILLIN\CLAVULANIC ACID
     Indication: SINUSITIS
     Route: 048
     Dates: start: 20190320, end: 2019
  15. FUROSEMIDE. [Concomitant]
     Active Substance: FUROSEMIDE
     Indication: HYPERVOLAEMIA
     Route: 048
     Dates: start: 20190207, end: 20190412
  16. INMUNOGLOBULINA [IMMUNOGLOBULINS NOS] [Concomitant]
     Indication: HYPOGAMMAGLOBULINAEMIA
     Route: 042
     Dates: start: 20190207

REACTIONS (6)
  - Febrile neutropenia [Unknown]
  - Urinary tract infection pseudomonal [Recovered/Resolved with Sequelae]
  - Pseudomonal bacteraemia [Fatal]
  - Septic shock [Fatal]
  - Neutropenia [Recovered/Resolved]
  - Urinary tract infection bacterial [Recovered/Resolved with Sequelae]

NARRATIVE: CASE EVENT DATE: 20190507
